FAERS Safety Report 5004599-6 (Version None)
Quarter: 2006Q2

REPORT INFORMATION
  Report Type: 
  Country: None (occurrence: None)
  Receive Date: 20060512
  Receipt Date: 20060505
  Transmission Date: 20061013
  Serious: Yes (Other)
  Sender: FDA-Public Use
  Company Number: 2006059951

PATIENT
  Age: 34 Year
  Sex: Female
  Weight: 65.7716 kg

DRUGS (1)
  1. VISINE L.R. [Suspect]
     Indication: EYE IRRITATION
     Dosage: 1-2 DROPS TWICE A DAY, OPHTHALMIC
     Route: 047
     Dates: start: 20060101

REACTIONS (1)
  - DRUG DEPENDENCE [None]
